FAERS Safety Report 10033724 (Version 3)
Quarter: 2014Q2

REPORT INFORMATION
  Report Type: Spontaneous
  Country: JP (occurrence: JP)
  Receive Date: 20140325
  Receipt Date: 20140605
  Transmission Date: 20141212
  Serious: Yes (Death, Life-Threatening, Disabling, Other)
  Sender: FDA-Public Use
  Company Number: JP-ROCHE-1346320

PATIENT
  Age: 85 Year
  Sex: Male
  Weight: 56 kg

DRUGS (19)
  1. AVASTIN [Suspect]
     Indication: LUNG ADENOCARCINOMA METASTATIC
     Route: 041
     Dates: start: 20120620, end: 20131217
  2. ALIMTA [Suspect]
     Indication: LUNG NEOPLASM MALIGNANT
     Route: 041
  3. TAXOL [Suspect]
     Indication: LUNG ADENOCARCINOMA METASTATIC
     Dosage: DOSAGE IS UNCERTAIN.
     Route: 041
     Dates: start: 20120620, end: 20121030
  4. CARBOPLATIN [Suspect]
     Indication: LUNG ADENOCARCINOMA METASTATIC
     Dosage: DOSAGE IS UNCERTAIN.
     Route: 041
     Dates: start: 20120620, end: 20121030
  5. GRANISETRON [Concomitant]
     Dosage: DOSAGE IS UNCERTAIN.
     Route: 041
  6. DEXART [Concomitant]
     Dosage: DOSAGE IS UNCERTAIN.
     Route: 041
  7. AMLODIPINE [Concomitant]
     Dosage: DOSAGE IS UNCERTAIN.
     Route: 048
  8. FUROSEMIDE [Concomitant]
     Dosage: DOSAGE IS UNCERTAIN.
     Route: 048
  9. TIZANIDINE [Concomitant]
     Dosage: DOSAGE IS UNCERTAIN.
     Route: 048
  10. REBAMIPIDE [Concomitant]
     Dosage: DOSAGE IS UNCERTAIN.
     Route: 048
  11. OPALMON [Concomitant]
     Dosage: DOSAGE IS UNCERTAIN.
     Route: 048
  12. LYRICA [Concomitant]
     Dosage: DOSAGE IS UNCERTAIN.
     Route: 048
  13. METHYCOBAL [Concomitant]
     Dosage: DOSAGE IS UNCERTAIN.
     Route: 048
  14. LOXONIN [Concomitant]
     Dosage: DOSAGE IS UNCERTAIN.
     Route: 048
  15. PANVITAN [Concomitant]
     Dosage: DOSAGE IS UNCERTAIN.
     Route: 048
  16. MAGNESIUM OXIDE [Concomitant]
     Indication: CONSTIPATION
     Dosage: DOSAGE IS UNCERTAIN.
     Route: 048
  17. NEXIUM [Concomitant]
     Dosage: DOSAGE IS UNCERTAIN.
     Route: 048
  18. SENNOSIDE [Concomitant]
     Indication: CONSTIPATION
     Dosage: DOSAGE IS UNCERTAIN.
     Route: 048
  19. SHAKUYAKUKANZOTO [Concomitant]
     Dosage: DOSAGE IS UNCERTAIN.
     Route: 048

REACTIONS (10)
  - Gastrointestinal perforation [Recovering/Resolving]
  - Diverticulitis [Not Recovered/Not Resolved]
  - Febrile neutropenia [Unknown]
  - Pneumonia [Recovered/Resolved]
  - Pleural effusion [Unknown]
  - Sepsis [Recovering/Resolving]
  - Hypoalbuminaemia [Recovering/Resolving]
  - Disseminated intravascular coagulation [Recovering/Resolving]
  - Neutropenia [Recovered/Resolved]
  - Disease progression [Fatal]
